FAERS Safety Report 19097751 (Version 1)
Quarter: 2021Q2

REPORT INFORMATION
  Report Type: Other
  Country: IN (occurrence: IN)
  Receive Date: 20210406
  Receipt Date: 20210406
  Transmission Date: 20210717
  Serious: Yes (Hospitalization)
  Sender: FDA-Public Use
  Company Number: IN-ROCHE-2803937

PATIENT
  Age: 50 Year
  Sex: Female

DRUGS (6)
  1. BEVACIZUMAB. [Suspect]
     Active Substance: BEVACIZUMAB
     Indication: DIABETIC RETINAL OEDEMA
     Dosage: 1.25 MG IN 0.05 ML
     Route: 050
  2. PROPARACAINE HYDROCHLORIDE. [Concomitant]
     Active Substance: PROPARACAINE HYDROCHLORIDE
     Indication: LOCAL ANAESTHESIA
     Dosage: INSTILLED 4?5 TIMES
  3. POVIDONE?IODINE. [Concomitant]
     Active Substance: POVIDONE-IODINE
     Dosage: INSTILLED 4?5 TIMES PRE?INJECTION
  4. DIAMOX SEQUELS [Concomitant]
     Active Substance: ACETAZOLAMIDE
     Route: 048
  5. CIPROFLOXACIN. [Concomitant]
     Active Substance: CIPROFLOXACIN
     Route: 048
  6. CIPROFLOXACIN. [Concomitant]
     Active Substance: CIPROFLOXACIN
     Route: 048

REACTIONS (4)
  - Transmission of an infectious agent via product [Unknown]
  - Off label use [Unknown]
  - Endophthalmitis [Unknown]
  - Product contamination microbial [Unknown]
